FAERS Safety Report 15134940 (Version 1)
Quarter: 2018Q3

REPORT INFORMATION
  Report Type: Spontaneous
  Country: US (occurrence: US)
  Receive Date: 20180615
  Receipt Date: 20180615
  Transmission Date: 20181010
  Serious: Yes (Hospitalization)
  Sender: FDA-Public Use
  Company Number: None

PATIENT
  Age: 25 Year
  Sex: Female

DRUGS (8)
  1. CHOLESTYRAM [Concomitant]
     Active Substance: CHOLESTYRAMINE
  2. ONDANSETRON [Concomitant]
     Active Substance: ONDANSETRON
  3. CIPROFLOXACN [Concomitant]
     Active Substance: CIPROFLOXACIN
  4. VITAMIN D [Concomitant]
     Active Substance: CHOLECALCIFEROL
  5. URSODIOL. [Concomitant]
     Active Substance: URSODIOL
  6. TACROLIMUS 1MG CAP [Suspect]
     Active Substance: TACROLIMUS
     Indication: LIVER TRANSPLANT
     Route: 048
     Dates: start: 20180203
  7. MYCOPHENOLATE [Concomitant]
     Active Substance: MYCOPHENOLIC ACID
  8. VANCOMYCIN [Concomitant]
     Active Substance: VANCOMYCIN

REACTIONS (1)
  - Alopecia [None]
